FAERS Safety Report 20033046 (Version 1)
Quarter: 2021Q4

REPORT INFORMATION
  Report Type: Spontaneous
  Country: AT (occurrence: AT)
  Receive Date: 20211104
  Receipt Date: 20211104
  Transmission Date: 20220304
  Serious: Yes (Other)
  Sender: FDA-Public Use
  Company Number: AT-TEVA-2021-AT-1972312

PATIENT
  Age: 17 Year
  Sex: Female

DRUGS (1)
  1. ARIPIPRAZOLE [Suspect]
     Active Substance: ARIPIPRAZOLE
     Indication: Schizophrenia
     Dosage: 10 MILLIGRAM DAILY; ARIPIPRAZOL RATIOPHARM, FOR ABOUT 1 YEAR
     Dates: end: 202109

REACTIONS (2)
  - Dyskinesia [Unknown]
  - Muscle twitching [Unknown]
